FAERS Safety Report 5906964-9 (Version None)
Quarter: 2008Q4

REPORT INFORMATION
  Report Type: 
  Country: None (occurrence: None)
  Receive Date: 20081003
  Receipt Date: 20080929
  Transmission Date: 20090506
  Serious: No
  Sender: FDA-Public Use
  Company Number: FR-WYE-G01989708

PATIENT
  Sex: Female

DRUGS (7)
  1. EFFEXOR [Suspect]
     Indication: DEPRESSION
     Dosage: 112.5 MG TOTAL DAILY
     Route: 048
     Dates: start: 20080701, end: 20080728
  2. EFFEXOR [Suspect]
     Route: 048
     Dates: start: 20080729
  3. RIVOTRIL [Concomitant]
     Dosage: 6 MG TOTAL DAILY
     Dates: start: 20080701, end: 20080728
  4. IMOVANE [Concomitant]
     Route: 048
     Dates: start: 20080729
  5. OXAZEPAM [Concomitant]
     Dosage: 40 MG TOTAL DAILY
     Route: 048
     Dates: start: 20080729, end: 20080801
  6. OXAZEPAM [Concomitant]
     Dosage: 20 MG TOTAL DAILY
     Route: 048
     Dates: start: 20080801
  7. LEVOTHYROX [Concomitant]
     Indication: HYPOTHYROIDISM
     Route: 048

REACTIONS (1)
  - DRUG EXPOSURE DURING PREGNANCY [None]
